FAERS Safety Report 8831183 (Version 3)
Quarter: 2012Q4

REPORT INFORMATION
  Report Type: 
  Country: US (occurrence: US)
  Receive Date: 20121008
  Receipt Date: 20121207
  Transmission Date: 20130627
  Serious: No
  Sender: FDA-Public Use
  Company Number: US-VERTEX PHARMACEUTICAL INC.-2012-021495

PATIENT
  Sex: Male
  Weight: 100 kg

DRUGS (5)
  1. VX-950 (TELAPREVIR) [Suspect]
     Indication: HEPATITIS C
     Dosage: 750 mg, tid
     Route: 048
     Dates: start: 201208, end: 201211
  2. PEGASYS [Concomitant]
     Indication: HEPATITIS C
     Dosage: 180 ?g, qw
     Route: 058
     Dates: start: 201208
  3. RIBASPHERE [Concomitant]
     Indication: HEPATITIS C
     Dosage: 600 mg, bid
     Route: 048
     Dates: start: 201208
  4. ALLOPURINOL [Concomitant]
     Dosage: 1 DF, qd
     Route: 048
  5. DEMEROL [Concomitant]
     Dosage: 1 DF, qd
     Route: 048

REACTIONS (11)
  - Mood altered [Unknown]
  - Arthralgia [Unknown]
  - Insomnia [Unknown]
  - Fatigue [Unknown]
  - Diarrhoea [Unknown]
  - Vomiting [Unknown]
  - Anorectal discomfort [Unknown]
  - Blood pressure increased [Unknown]
  - Blood glucose increased [Unknown]
  - Migraine [Unknown]
  - Vision blurred [Unknown]
